FAERS Safety Report 24815014 (Version 1)
Quarter: 2025Q1

REPORT INFORMATION
  Report Type: Spontaneous
  Country: US (occurrence: US)
  Receive Date: 20250107
  Receipt Date: 20250107
  Transmission Date: 20250409
  Serious: No
  Sender: MYLAN
  Company Number: US-MYLANLABS-2024M1114835

PATIENT
  Age: 79 Year
  Sex: Male
  Weight: 86 kg

DRUGS (1)
  1. EPLERENONE [Suspect]
     Active Substance: EPLERENONE
     Indication: Hypervolaemia
     Dosage: 25 MILLIGRAM, QD (ONCE DAILY)
     Route: 048

REACTIONS (2)
  - Hypotension [Unknown]
  - Off label use [Unknown]
